FAERS Safety Report 9384921 (Version 1)
Quarter: 2013Q3

REPORT INFORMATION
  Report Type: Spontaneous
  Country: US (occurrence: US)
  Receive Date: 20130705
  Receipt Date: 20130705
  Transmission Date: 20140515
  Serious: No
  Sender: FDA-Public Use
  Company Number: US-GLAXOSMITHKLINE-A0953968A

PATIENT
  Age: 29 Year
  Sex: Female
  Weight: 61.74 kg

DRUGS (7)
  1. BENLYSTA [Suspect]
     Indication: SYSTEMIC LUPUS ERYTHEMATOSUS
     Route: 042
     Dates: start: 20110601, end: 20110705
  2. PLAQUENIL [Concomitant]
     Indication: SYSTEMIC LUPUS ERYTHEMATOSUS
     Dosage: 200MG PER DAY
     Route: 048
  3. PREDNISONE [Concomitant]
     Indication: SYSTEMIC LUPUS ERYTHEMATOSUS
     Dosage: 15MG PER DAY
     Route: 048
  4. IMURAN [Concomitant]
     Indication: SYSTEMIC LUPUS ERYTHEMATOSUS
     Dosage: 50MG PER DAY
     Route: 048
  5. ASPIRIN [Concomitant]
     Dosage: 81MG PER DAY
  6. SYNTHROID [Concomitant]
  7. PRENATAL VITAMINS [Concomitant]

REACTIONS (3)
  - Exposure during pregnancy [Not Recovered/Not Resolved]
  - Alopecia [Not Recovered/Not Resolved]
  - Pain of skin [Not Recovered/Not Resolved]
